FAERS Safety Report 15560040 (Version 1)
Quarter: 2018Q4

REPORT INFORMATION
  Report Type: Spontaneous
  Country: US (occurrence: US)
  Receive Date: 20181027
  Receipt Date: 20181027
  Transmission Date: 20190205
  Serious: Yes (Life-Threatening, Hospitalization, Disabling, Other)
  Sender: FDA-Public Use
  Company Number: None

PATIENT
  Age: 64 Year
  Sex: Female
  Weight: 54 kg

DRUGS (1)
  1. LEVOFLOXACIN. [Suspect]
     Active Substance: LEVOFLOXACIN
     Indication: NEPHROLITHIASIS
     Dosage: ?          OTHER STRENGTH:UNKNOWN;QUANTITY:12 UNKNOWN;OTHER FREQUENCY:IV DRIP 6 DAY 24/7;?
     Route: 041
     Dates: start: 20170403, end: 20170408

REACTIONS (16)
  - Tendon pain [None]
  - Lacrimation increased [None]
  - Anxiety [None]
  - Hypoacusis [None]
  - Fatigue [None]
  - Vomiting projectile [None]
  - Nausea [None]
  - Product complaint [None]
  - Tendonitis [None]
  - Photophobia [None]
  - Loss of personal independence in daily activities [None]
  - Insomnia [None]
  - Vomiting [None]
  - Visual acuity reduced [None]
  - Pain [None]
  - Gait disturbance [None]

NARRATIVE: CASE EVENT DATE: 20170403
